APPROVED DRUG PRODUCT: LOKELMA
Active Ingredient: SODIUM ZIRCONIUM CYCLOSILICATE
Strength: 10GM/PACKET
Dosage Form/Route: FOR SUSPENSION;ORAL
Application: N207078 | Product #002
Applicant: ASTRAZENECA PHARMACEUTICALS LP
Approved: May 18, 2018 | RLD: Yes | RS: Yes | Type: RX

PATENTS:
Patent 9861658 | Expires: Feb 10, 2032
Patent 9592253 | Expires: Oct 14, 2035
Patent 9913860 | Expires: Oct 22, 2033
Patent 10300087 | Expires: Oct 14, 2035
Patent 10398730 | Expires: Feb 10, 2032
Patent 9844567 | Expires: Feb 10, 2032
Patent 8808750 | Expires: Feb 10, 2032
Patent 11738044 | Expires: Oct 14, 2035
Patent 10413569 | Expires: Feb 10, 2032
Patent 10695365 | Expires: Oct 22, 2033
Patent 8877255 | Expires: Oct 22, 2033
Patent 11406662 | Expires: Feb 10, 2032
Patent 8802152 | Expires: Apr 19, 2032